FAERS Safety Report 7067473-X (Version None)
Quarter: 2010Q4

REPORT INFORMATION
  Report Type: 
  Country: None (occurrence: None)
  Receive Date: 20101028
  Receipt Date: 20101022
  Transmission Date: 20110411
  Serious: Yes (Other)
  Sender: FDA-Public Use
  Company Number: US-BAYER-201037545NA

PATIENT
  Age: 28 Year
  Sex: Female

DRUGS (2)
  1. MIRENA [Suspect]
     Indication: CONTRACEPTION
     Route: 015
     Dates: start: 20100126
  2. MIRENA [Suspect]
     Route: 015

REACTIONS (8)
  - ABDOMINAL PAIN [None]
  - ASTHENIA [None]
  - CONFUSIONAL STATE [None]
  - DEVICE BREAKAGE [None]
  - DYSARTHRIA [None]
  - HYPOAESTHESIA [None]
  - MUSCLE SPASMS [None]
  - VAGINAL HAEMORRHAGE [None]
